FAERS Safety Report 10729276 (Version 1)
Quarter: 2015Q1

REPORT INFORMATION
  Report Type: Other
  Country: GB (occurrence: GB)
  Receive Date: 20150122
  Receipt Date: 20150122
  Transmission Date: 20150721
  Serious: Yes (Other)
  Sender: FDA-Public Use
  Company Number: GB-MYLANLABS-2015M1000716

PATIENT

DRUGS (2)
  1. TEMAZEPAM. [Suspect]
     Active Substance: TEMAZEPAM
     Dosage: 10 MG, TID
  2. TEMAZEPAM. [Suspect]
     Active Substance: TEMAZEPAM
     Dosage: 10 MG, QID

REACTIONS (2)
  - Therapy change [Unknown]
  - Drug dependence [Unknown]
